FAERS Safety Report 7818556-5 (Version None)
Quarter: 2011Q4

REPORT INFORMATION
  Report Type: 
  Country: None (occurrence: None)
  Receive Date: 20111017
  Receipt Date: 20111006
  Transmission Date: 20120403
  Serious: Yes (Hospitalization)
  Sender: FDA-Public Use
  Company Number: US-ASTRAZENECA-2011SE60453

PATIENT
  Age: 30 Year
  Sex: Female

DRUGS (1)
  1. SEROQUEL [Suspect]
     Route: 048

REACTIONS (4)
  - SYNCOPE [None]
  - VOMITING [None]
  - LOWER LIMB FRACTURE [None]
  - GALLBLADDER DISORDER [None]
